FAERS Safety Report 19787696 (Version 1)
Quarter: 2021Q3

REPORT INFORMATION
  Report Type: Spontaneous
  Country: US (occurrence: US)
  Receive Date: 20210903
  Receipt Date: 20210903
  Transmission Date: 20211014
  Serious: No
  Sender: FDA-Public Use
  Company Number: US-DECIPHERA PHARMACEUTICALS LLC-2021US000629

PATIENT
  Age: 55 Year
  Sex: Female

DRUGS (2)
  1. QINLOCK [Suspect]
     Active Substance: RIPRETINIB
     Indication: HEAD AND NECK CANCER
     Dosage: 150 MILLIGRAM, QD
     Route: 048
     Dates: start: 20210101, end: 20210709
  2. QINLOCK [Suspect]
     Active Substance: RIPRETINIB
     Dosage: 50 MILLIGRAM QD
     Route: 048
     Dates: start: 20210716

REACTIONS (3)
  - Fatigue [Unknown]
  - Incorrect dose administered [Unknown]
  - Insomnia [Unknown]

NARRATIVE: CASE EVENT DATE: 2021
